FAERS Safety Report 9267422 (Version 1)
Quarter: 2013Q2

REPORT INFORMATION
  Report Type: Spontaneous
  Country: JP (occurrence: JP)
  Receive Date: 20130502
  Receipt Date: 20130502
  Transmission Date: 20140414
  Serious: Yes (Hospitalization)
  Sender: FDA-Public Use
  Company Number: JP-PFIZER INC-2013132886

PATIENT
  Age: 63 Year
  Sex: Male

DRUGS (6)
  1. CELECOX [Suspect]
     Indication: PAIN IN EXTREMITY
     Dosage: UNK
     Route: 048
  2. CELECOX [Suspect]
     Indication: NEURALGIA
  3. OPIOIDS [Concomitant]
     Indication: PAIN IN EXTREMITY
     Dosage: UNK
  4. OPIOIDS [Concomitant]
     Indication: NEURALGIA
  5. PREGABALIN [Concomitant]
     Indication: PAIN IN EXTREMITY
     Dosage: UNK
     Route: 048
  6. PREGABALIN [Concomitant]
     Indication: NEURALGIA

REACTIONS (3)
  - Drug ineffective for unapproved indication [Recovered/Resolved]
  - Neuralgia [Recovered/Resolved]
  - Pain in extremity [Recovered/Resolved]
